FAERS Safety Report 8327277-4 (Version None)
Quarter: 2012Q2

REPORT INFORMATION
  Report Type: 
  Country: None (occurrence: None)
  Receive Date: 20120502
  Receipt Date: 20120418
  Transmission Date: 20120825
  Serious: Yes (Hospitalization)
  Sender: FDA-Public Use
  Company Number: JP-AMGEN-JPNSP2012025344

PATIENT
  Age: 68 Year
  Sex: Female
  Weight: 56 kg

DRUGS (13)
  1. AMLODIPINE BESYLATE [Concomitant]
     Dosage: 5 MG, 1X/DAY
     Route: 048
  2. CRESTOR [Concomitant]
     Dosage: 2.5 MG, 1X/DAY
     Route: 048
  3. DEPAS [Concomitant]
     Dosage: 0.5 MG, 2X/DAY
     Route: 048
  4. VOLTAREN [Concomitant]
     Dosage: 37.5 MG, UNK
     Route: 048
  5. ENBREL [Suspect]
     Indication: RHEUMATOID ARTHRITIS
     Dosage: UNK
     Route: 058
     Dates: start: 20110201, end: 20111219
  6. RHEUMATREX [Suspect]
     Indication: RHEUMATOID ARTHRITIS
     Dosage: 2 MG, 3X/WEEK
     Route: 048
     Dates: end: 20111219
  7. MUCOSTA [Concomitant]
     Dosage: 100 MG, UNK
     Route: 048
  8. CEFTRIAXONE [Concomitant]
     Dosage: 1 G, 1X/DAY
     Route: 042
  9. OLMESARTAN MEDOXOMIL [Concomitant]
     Dosage: 20 MG, 1X/DAY
     Route: 048
  10. GASLON [Concomitant]
     Dosage: 2 MG, 1X/DAY
     Route: 048
  11. ASPIRIN [Concomitant]
     Indication: CEREBRAL INFARCTION
     Dosage: 100 MG, 1X/DAY
     Route: 048
  12. FOLIAMIN [Concomitant]
     Indication: RHEUMATOID ARTHRITIS
     Dosage: UNK, WEEKLY
     Route: 048
  13. LEVOFLOXACIN [Concomitant]
     Dosage: 500 MG, 1X/DAY
     Route: 048

REACTIONS (1)
  - ORGANISING PNEUMONIA [None]
